FAERS Safety Report 17424279 (Version 1)
Quarter: 2020Q1

REPORT INFORMATION
  Report Type: Spontaneous
  Country: GB (occurrence: GB)
  Receive Date: 20200217
  Receipt Date: 20200217
  Transmission Date: 20200409
  Serious: Yes (Hospitalization)
  Sender: FDA-Public Use
  Company Number: GB-BEH-2020113131

PATIENT
  Age: 29 Year
  Sex: Female

DRUGS (3)
  1. PRIVIGEN [Suspect]
     Active Substance: HUMAN IMMUNOGLOBULIN G
     Dosage: UNK
     Route: 042
  2. PRIVIGEN [Suspect]
     Active Substance: HUMAN IMMUNOGLOBULIN G
     Dosage: UNK
     Route: 042
  3. PRIVIGEN [Suspect]
     Active Substance: HUMAN IMMUNOGLOBULIN G
     Dosage: 30 GRAM, Q3W
     Route: 042
     Dates: start: 2019

REACTIONS (5)
  - Dyspnoea [Unknown]
  - Feeling cold [Unknown]
  - Chills [Unknown]
  - Hyperventilation [Unknown]
  - Pyrexia [Unknown]

NARRATIVE: CASE EVENT DATE: 20200127
